FAERS Safety Report 5275165-2 (Version None)
Quarter: 2007Q1

REPORT INFORMATION
  Report Type: 
  Country: None (occurrence: None)
  Receive Date: 20070320
  Receipt Date: 20070306
  Transmission Date: 20070707
  Serious: Yes (Other)
  Sender: FDA-Public Use
  Company Number: 153799ISR

PATIENT
  Age: 28 Year
  Sex: Female

DRUGS (1)
  1. TRAZODONE HCL [Suspect]
     Indication: DEPRESSION
     Dosage: 300 MG (300 MG, 1 IN 1 D) ORAL
     Route: 048
     Dates: start: 20060418

REACTIONS (2)
  - ABORTION SPONTANEOUS [None]
  - DRUG EXPOSURE DURING PREGNANCY [None]
